FAERS Safety Report 11006026 (Version 1)
Quarter: 2015Q2

REPORT INFORMATION
  Report Type: Spontaneous
  Country: US (occurrence: US)
  Receive Date: 20150409
  Receipt Date: 20150409
  Transmission Date: 20150821
  Serious: Yes (Other)
  Sender: FDA-Public Use
  Company Number: US-MERCK-1503USA014897

PATIENT
  Sex: Male

DRUGS (2)
  1. TEMODAR [Suspect]
     Active Substance: TEMOZOLOMIDE
     Indication: BRAIN NEOPLASM MALIGNANT
     Dosage: UNK
     Route: 048
     Dates: start: 20150219
  2. KEPPRA [Concomitant]
     Active Substance: LEVETIRACETAM

REACTIONS (10)
  - Deafness unilateral [Unknown]
  - Eating disorder [Unknown]
  - Decreased appetite [Unknown]
  - Oropharyngeal pain [Unknown]
  - Somnolence [Unknown]
  - Hypotonia [Unknown]
  - Fatigue [Unknown]
  - Apathy [Unknown]
  - Surgery [Unknown]
  - Cough [Unknown]

NARRATIVE: CASE EVENT DATE: 2015
